FAERS Safety Report 7540342-4 (Version None)
Quarter: 2011Q2

REPORT INFORMATION
  Report Type: 
  Country: None (occurrence: None)
  Receive Date: 20110610
  Receipt Date: 20040401
  Transmission Date: 20111010
  Serious: Yes (Death, Other)
  Sender: FDA-Public Use
  Company Number: PHFR2004GB01424

PATIENT
  Sex: Male

DRUGS (4)
  1. OMEPRAZOLE [Concomitant]
     Dosage: 40 MG, BID
     Route: 048
  2. GAVISCON [Concomitant]
     Route: 048
  3. CLOZAPINE [Suspect]
     Indication: SCHIZOPHRENIA
     Dosage: 400MG/DAY
     Route: 048
     Dates: start: 19840418
  4. LEVOTHYROXINE SODIUM [Concomitant]
     Route: 048

REACTIONS (3)
  - OESOPHAGEAL PERFORATION [None]
  - DUODENAL ULCER PERFORATION [None]
  - PERITONITIS [None]
